FAERS Safety Report 6063966-2 (Version None)
Quarter: 2009Q1

REPORT INFORMATION
  Report Type: 
  Country: None (occurrence: None)
  Receive Date: 20090204
  Receipt Date: 20090127
  Transmission Date: 20090719
  Serious: Yes (Hospitalization)
  Sender: FDA-Public Use
  Company Number: PHBS2009US00643

PATIENT
  Age: 71 Year
  Sex: Female

DRUGS (13)
  1. ZOLEDRONIC ACID [Suspect]
     Indication: MULTIPLE MYELOMA
     Dosage: 4 MG, QMO
     Route: 042
  2. DEXAMETHASONE [Concomitant]
     Dosage: 40 MG, UNK
     Route: 042
  3. THALIDOMIDE [Concomitant]
     Dosage: 100 MG/DAY
  4. DARBEPOETIN ALFA [Concomitant]
     Dosage: 300 MG, QW
     Route: 030
  5. FUROSEMIDE [Concomitant]
     Dosage: 40 MG/DAY
  6. VALSARTAN [Concomitant]
     Dosage: 180 MG/DAY
  7. ATORVASTATIN [Concomitant]
     Dosage: 40 MG/DAY
  8. SERTRALINE [Concomitant]
     Dosage: 25 MG/DAY
  9. SOTALOL [Concomitant]
     Dosage: 40 MG/DAY
  10. FLUTICASONE PROPIONATE W/SALMETEROL XINAFOATE [Concomitant]
     Indication: CHRONIC OBSTRUCTIVE PULMONARY DISEASE
     Dosage: 250/50 TWICE DAILY
  11. CALCIUM CITRATE W/VITAMIN D NOS [Concomitant]
     Dosage: 500 MG/ 400 IU TWICE DAILY
  12. IRON SULFATETHIAMIN COMPOUND TAB [Concomitant]
     Dosage: 325 MG, TID
  13. WARFARIN SODIUM [Concomitant]
     Dosage: 6 MG/DAY

REACTIONS (14)
  - ABSCESS ORAL [None]
  - BONE DISORDER [None]
  - BRADYCARDIA [None]
  - CARDIAC PACEMAKER INSERTION [None]
  - DENTAL CARIES [None]
  - GINGIVAL PAIN [None]
  - HAEMATOCRIT DECREASED [None]
  - HAEMOGLOBIN DECREASED [None]
  - INFECTION [None]
  - OSTEONECROSIS [None]
  - SICK SINUS SYNDROME [None]
  - STOMATITIS [None]
  - SWELLING [None]
  - SWOLLEN TONGUE [None]
